FAERS Safety Report 4306670-0 (Version None)
Quarter: 2004Q1

REPORT INFORMATION
  Report Type: 
  Country: None (occurrence: None)
  Receive Date: 20040225
  Receipt Date: 20031023
  Transmission Date: 20041129
  Serious: No
  Sender: FDA-Public Use
  Company Number: US-BRISTOL-MYERS SQUIBB COMPANY-12439725

PATIENT
  Age: 45 Year
  Sex: Female

DRUGS (2)
  1. EXCEDRIN [Suspect]
     Indication: HEADACHE
  2. ESTROGEN PATCH [Concomitant]
     Indication: HYSTERECTOMY

REACTIONS (1)
  - INSOMNIA [None]
